FAERS Safety Report 6040930-0 (Version None)
Quarter: 2009Q1

REPORT INFORMATION
  Report Type: 
  Country: None (occurrence: None)
  Receive Date: 20090116
  Receipt Date: 20080911
  Transmission Date: 20090719
  Serious: No
  Sender: FDA-Public Use
  Company Number: US-BRISTOL-MYERS SQUIBB COMPANY-14245740

PATIENT
  Age: 41 Year
  Sex: Female

DRUGS (1)
  1. ABILIFY [Suspect]
     Indication: BIPOLAR II DISORDER
     Dosage: TAKEN 2MG,5MG,10MG TABS
     Dates: start: 20080701

REACTIONS (5)
  - ANXIETY [None]
  - DEPRESSIVE SYMPTOM [None]
  - DYSKINESIA [None]
  - FEELING JITTERY [None]
  - INSOMNIA [None]
